FAERS Safety Report 6418098-8 (Version None)
Quarter: 2009Q4

REPORT INFORMATION
  Report Type: 
  Country: None (occurrence: None)
  Receive Date: 20091026
  Receipt Date: 20091013
  Transmission Date: 20100525
  Serious: Yes (Other)
  Sender: FDA-Public Use
  Company Number: ADR38422009

PATIENT
  Age: 67 Year
  Sex: Male

DRUGS (8)
  1. SIMVASTATIN [Suspect]
     Indication: HYPERLIPIDAEMIA
     Dosage: 40 MG, ORAL
     Route: 048
     Dates: start: 20080229
  2. ASPIRIN [Concomitant]
  3. COD LIVER OIL [Concomitant]
  4. FYBOGEL [Concomitant]
  5. GLUCOSAMINE [Concomitant]
  6. NIFEDIPINE [Concomitant]
  7. RAMIPRIL [Concomitant]
  8. TAMSULOSIN [Concomitant]

REACTIONS (1)
  - TERMINAL INSOMNIA [None]
